FAERS Safety Report 7272267-6 (Version None)
Quarter: 2011Q1

REPORT INFORMATION
  Report Type: 
  Country: None (occurrence: None)
  Receive Date: 20110203
  Receipt Date: 20110119
  Transmission Date: 20110831
  Serious: Yes (Other)
  Sender: FDA-Public Use
  Company Number: PHHY2011GB04396

PATIENT
  Age: 60 Year

DRUGS (7)
  1. METFORMIN HCL [Suspect]
     Dosage: 1500 MG, QD
  2. MIRTAZAPINE [Suspect]
     Indication: DEPRESSION
     Dosage: UNK
  3. VALSARTAN [Suspect]
     Dosage: 120 MG, QD
  4. COLCHICINE [Suspect]
     Dosage: 1 MG, QD
  5. CETRIZINE [Suspect]
     Dosage: 10 MG, QD
  6. ALLOPURINOL [Suspect]
     Dosage: 300 MG, QD
  7. DOXAZOSIN [Suspect]
     Dosage: 4 MG, QD

REACTIONS (1)
  - PANCREATITIS ACUTE [None]
